FAERS Safety Report 7903408-2 (Version None)
Quarter: 2011Q4

REPORT INFORMATION
  Report Type: 
  Country: None (occurrence: None)
  Receive Date: 20111107
  Receipt Date: 20111028
  Transmission Date: 20120403
  Serious: Yes (Other)
  Sender: FDA-Public Use
  Company Number: 1000025057

PATIENT
  Age: 57 Year
  Sex: Female

DRUGS (1)
  1. LEXAPRO [Suspect]
     Dosage: 10 MG (10 MG,1 IN 1 D),ORAL
     Route: 048
     Dates: start: 20100101, end: 20110701

REACTIONS (5)
  - DEPRESSION [None]
  - NASAL CONGESTION [None]
  - APHASIA [None]
  - BACK PAIN [None]
  - VOMITING [None]
